FAERS Safety Report 7970094-5 (Version None)
Quarter: 2011Q4

REPORT INFORMATION
  Report Type: 
  Country: None (occurrence: None)
  Receive Date: 20111122
  Receipt Date: 20110831
  Transmission Date: 20120403
  Serious: No
  Sender: FDA-Public Use
  Company Number: PHHY2011US57538

PATIENT
  Age: 56 Year
  Sex: Female

DRUGS (7)
  1. ZOLOFT [Concomitant]
  2. ENABLEX [Concomitant]
  3. GEODON [Concomitant]
  4. ZOCOR [Concomitant]
  5. BACLOFEN [Concomitant]
  6. COUMADIN [Concomitant]
  7. GILENYA [Suspect]
     Indication: MULTIPLE SCLEROSIS
     Dosage: 0.5 MG, DAILY, ORAL
     Route: 048
     Dates: start: 20101230

REACTIONS (1)
  - JOINT SWELLING [None]
